FAERS Safety Report 9295049 (Version 1)
Quarter: 2013Q2

REPORT INFORMATION
  Report Type: Spontaneous
  Country: US (occurrence: US)
  Receive Date: 20130517
  Receipt Date: 20130517
  Transmission Date: 20140414
  Serious: No
  Sender: FDA-Public Use
  Company Number: US-PFIZER INC-2013116704

PATIENT
  Age: 48 Year
  Sex: Female

DRUGS (2)
  1. ACCURETIC [Suspect]
     Indication: HYPERTENSION
     Dosage: 20/ 12.5, DAILY
     Route: 048
  2. ACCURETIC [Suspect]
     Dosage: [QUINAPRIL HCL 10 MG]/ [HYDROCHLOROTHIAZIDE 12.5 MG], DAILY
     Route: 048

REACTIONS (3)
  - Incorrect dose administered [Unknown]
  - Dizziness [Recovered/Resolved]
  - Drug dispensing error [Unknown]
